FAERS Safety Report 5504040-0 (Version None)
Quarter: 2007Q4

REPORT INFORMATION
  Report Type: 
  Country: None (occurrence: None)
  Receive Date: 20071030
  Receipt Date: 20071017
  Transmission Date: 20080405
  Serious: Yes (Hospitalization)
  Sender: FDA-Public Use
  Company Number: CLOF-10651

PATIENT
  Sex: Female

DRUGS (1)
  1. CLOFARABINE. MFR: GENZYME [Suspect]
     Indication: ACUTE MYELOID LEUKAEMIA
     Dates: start: 20070802, end: 20070806

REACTIONS (3)
  - CARDIOMEGALY [None]
  - MYOCARDIAL INFARCTION [None]
  - PULMONARY CONGESTION [None]
